FAERS Safety Report 14319594 (Version 1)
Quarter: 2017Q4

REPORT INFORMATION
  Report Type: Report from Study
  Country: GB (occurrence: GB)
  Receive Date: 20171222
  Receipt Date: 20171222
  Transmission Date: 20180321
  Serious: Yes (Hospitalization)
  Sender: FDA-Public Use
  Company Number: GB-TEVA-2017-GB-836223

PATIENT
  Age: 48 Year
  Sex: Female
  Weight: 79.8 kg

DRUGS (78)
  1. AVASTIN [Suspect]
     Active Substance: BEVACIZUMAB
     Indication: OVARIAN CANCER
     Dosage: TOTAL DOSE RECEIVED: 600 MG
     Route: 042
     Dates: start: 20130403, end: 20131227
  2. ONDANSETRON [Concomitant]
     Active Substance: ONDANSETRON
     Dosage: AS NEEDED
     Route: 065
  3. CYCLIZINE [Concomitant]
     Active Substance: CYCLIZINE
     Route: 048
     Dates: start: 20140221
  4. NAPROXEN. [Concomitant]
     Active Substance: NAPROXEN
     Route: 048
  5. DEXAMETHASONE. [Concomitant]
     Active Substance: DEXAMETHASONE
     Dosage: ONCE PRE-CHEMOTHERAPY
     Dates: start: 20140313, end: 20140313
  6. MOMETASONE [Concomitant]
     Active Substance: MOMETASONE
     Dosage: 2 SPRAYS
     Route: 045
  7. RANITIDINE. [Concomitant]
     Active Substance: RANITIDINE
     Route: 048
     Dates: start: 20140219, end: 20140221
  8. RANITIDINE. [Concomitant]
     Active Substance: RANITIDINE
     Dates: start: 20140220, end: 20140220
  9. CODEINE [Concomitant]
     Active Substance: CODEINE
     Indication: ANALGESIC THERAPY
     Route: 048
     Dates: start: 20140422
  10. DALTEPARIN [Concomitant]
     Active Substance: DALTEPARIN
     Route: 065
     Dates: start: 2014
  11. CETIRIZINE [Concomitant]
     Active Substance: CETIRIZINE HYDROCHLORIDE
     Route: 048
     Dates: start: 20140219, end: 20140221
  12. SODIUM CHLORIDE. [Concomitant]
     Active Substance: SODIUM CHLORIDE
     Dosage: OVER 2 HOURS
     Dates: start: 20140207, end: 20140207
  13. MORPHINE SULFATE. [Concomitant]
     Active Substance: MORPHINE SULFATE
     Dosage: 10 MG/5MLS SYRUP ; 5-20 MG PRN
     Route: 048
  14. LORAZEPAM. [Concomitant]
     Active Substance: LORAZEPAM
     Route: 048
     Dates: start: 20140423
  15. GEMCITABINE [Concomitant]
     Active Substance: GEMCITABINE\GEMCITABINE HYDROCHLORIDE
     Indication: CHEMOTHERAPY
     Dosage: ON DAY 1 AND DAY 8 OF CHEMOTHERAPY REGIME
     Route: 042
     Dates: start: 20140313, end: 20140313
  16. GEMCITABINE [Concomitant]
     Active Substance: GEMCITABINE\GEMCITABINE HYDROCHLORIDE
     Dates: start: 20140117
  17. DEXAMETHASONE. [Concomitant]
     Active Substance: DEXAMETHASONE
     Route: 048
     Dates: start: 20140312, end: 20140313
  18. DEXAMETHASONE. [Concomitant]
     Active Substance: DEXAMETHASONE
     Dosage: 12 HRS OR 6 HRS PRE CHEMO
     Route: 048
     Dates: start: 20140219, end: 20140220
  19. DALTEPARIN [Concomitant]
     Active Substance: DALTEPARIN
     Dosage: DOSE REDUCES AFTER 1 MONTH AS PER BNF
     Route: 058
     Dates: start: 20140324
  20. MAGNASPARTATE [Concomitant]
     Route: 048
     Dates: start: 201311
  21. APREPITANT. [Concomitant]
     Active Substance: APREPITANT
     Route: 048
     Dates: start: 20140314, end: 20140315
  22. NAPROXEN. [Concomitant]
     Active Substance: NAPROXEN
     Indication: INFLAMMATION
     Route: 065
     Dates: start: 201407
  23. NAPROXEN. [Concomitant]
     Active Substance: NAPROXEN
     Route: 065
  24. DIAZEPAM. [Concomitant]
     Active Substance: DIAZEPAM
     Route: 048
     Dates: start: 201408
  25. PARACETAMOL [Concomitant]
     Active Substance: ACETAMINOPHEN
     Route: 048
  26. DOXORUBICIN [Suspect]
     Active Substance: DOXORUBICIN
     Indication: PRODUCT USED FOR UNKNOWN INDICATION
     Dosage: 76 MILLIGRAM DAILY;
     Route: 065
     Dates: start: 20141008, end: 20141008
  27. PREGABALIN. [Concomitant]
     Active Substance: PREGABALIN
     Route: 065
     Dates: start: 2014
  28. PREGABALIN. [Concomitant]
     Active Substance: PREGABALIN
     Route: 065
     Dates: end: 20140827
  29. AMITRIPTYLINE [Concomitant]
     Active Substance: AMITRIPTYLINE
     Route: 048
  30. FENTANYL. [Concomitant]
     Active Substance: FENTANYL
     Dosage: 12 MCG/HR?PATCH
     Route: 065
  31. MAGNASPARTATE [Concomitant]
     Dosage: 1 SACHET
     Route: 048
     Dates: start: 20140423
  32. NAPROXEN. [Concomitant]
     Active Substance: NAPROXEN
     Route: 048
     Dates: start: 20140314
  33. NAPROXEN. [Concomitant]
     Active Substance: NAPROXEN
     Dosage: ONCE
     Route: 048
     Dates: start: 20140422, end: 20140422
  34. MOMETASONE FUROATE. [Concomitant]
     Active Substance: MOMETASONE FUROATE
     Dosage: 2 SPRAY DAILY
     Route: 045
     Dates: start: 201403
  35. DEXAMETHASONE. [Concomitant]
     Active Substance: DEXAMETHASONE
     Route: 042
     Dates: start: 20140207, end: 20140207
  36. DEXAMETHASONE. [Concomitant]
     Active Substance: DEXAMETHASONE
     Route: 048
     Dates: start: 20140222, end: 20140225
  37. MIRTAZAPINE. [Concomitant]
     Active Substance: MIRTAZAPINE
     Route: 065
     Dates: start: 20140820
  38. FLUOXETINE [Concomitant]
     Active Substance: FLUOXETINE HYDROCHLORIDE
     Indication: DEPRESSION
     Route: 048
     Dates: start: 201312
  39. OMEPRAZOLE. [Concomitant]
     Active Substance: OMEPRAZOLE
     Indication: GASTROOESOPHAGEAL REFLUX DISEASE
     Route: 048
  40. AMITRIPTYLINE [Concomitant]
     Active Substance: AMITRIPTYLINE
     Indication: DEPRESSION
     Route: 065
     Dates: start: 20140817, end: 20140827
  41. DALTEPARIN [Concomitant]
     Active Substance: DALTEPARIN
     Route: 065
     Dates: start: 20140817
  42. FENTANYL. [Concomitant]
     Active Substance: FENTANYL
     Dosage: 6 MCG / HOUR?PATCH
     Route: 065
     Dates: start: 20140716, end: 20140818
  43. FENTANYL. [Concomitant]
     Active Substance: FENTANYL
     Dosage: 25 MCG / HOUR
     Route: 065
     Dates: start: 20140822
  44. MAGNASPARTATE [Concomitant]
     Dosage: 1-2 SACHET
     Route: 048
     Dates: start: 20140222, end: 20140317
  45. SODIUM CHLORIDE. [Concomitant]
     Active Substance: SODIUM CHLORIDE
     Dosage: 1 DROP EACH NOSTRILS
     Route: 065
  46. APREPITANT. [Concomitant]
     Active Substance: APREPITANT
     Route: 048
     Dates: start: 20140313, end: 20140313
  47. APREPITANT. [Concomitant]
     Active Substance: APREPITANT
     Dosage: ONE HOUR PRE CHEMO
     Route: 048
     Dates: start: 20140220, end: 20140220
  48. GEMCITABINE [Concomitant]
     Active Substance: GEMCITABINE\GEMCITABINE HYDROCHLORIDE
     Dates: start: 20140207, end: 20140207
  49. MANNITOL. [Concomitant]
     Active Substance: MANNITOL
     Dosage: PRE-CISPLATIN AS PART OF CHEMOTHERAPY REGIME
     Route: 042
     Dates: start: 20140313, end: 20140313
  50. MANNITOL. [Concomitant]
     Active Substance: MANNITOL
     Route: 042
     Dates: start: 20131220, end: 20140220
  51. RANITIDINE. [Concomitant]
     Active Substance: RANITIDINE
     Dosage: ONCE PRE-CHEMOTHERAPY
     Dates: start: 20140313, end: 20140313
  52. PREGABALIN. [Concomitant]
     Active Substance: PREGABALIN
     Route: 065
     Dates: start: 201408
  53. CISPLATIN. [Concomitant]
     Active Substance: CISPLATIN
     Dates: start: 20140313, end: 20140313
  54. ONDANSETRON [Concomitant]
     Active Substance: ONDANSETRON
     Dates: start: 20140313, end: 20140313
  55. MAGNASPARTATE [Concomitant]
     Indication: BLOOD MAGNESIUM DECREASED
     Route: 065
     Dates: start: 201311
  56. MAGNASPARTATE [Concomitant]
     Dosage: 1 SACHET
     Route: 065
     Dates: start: 20140318
  57. MAGNASPARTATE [Concomitant]
     Dosage: 1-2 SACHETS
     Route: 048
  58. APREPITANT. [Concomitant]
     Active Substance: APREPITANT
     Route: 048
     Dates: start: 20140222, end: 20140223
  59. LORAZEPAM. [Concomitant]
     Active Substance: LORAZEPAM
     Route: 065
     Dates: start: 20141016, end: 20141016
  60. NAPROXEN. [Concomitant]
     Active Substance: NAPROXEN
     Route: 048
     Dates: end: 20140325
  61. CARBOPLATIN. [Concomitant]
     Active Substance: CARBOPLATIN
     Dates: start: 20140207, end: 20140207
  62. RANITIDINE. [Concomitant]
     Active Substance: RANITIDINE
     Route: 048
     Dates: start: 20140312, end: 20140315
  63. PREGABALIN. [Concomitant]
     Active Substance: PREGABALIN
     Route: 065
     Dates: start: 201407
  64. CISPLATIN. [Concomitant]
     Active Substance: CISPLATIN
     Route: 042
     Dates: start: 20131220, end: 20140220
  65. FENTANYL. [Concomitant]
     Active Substance: FENTANYL
     Dosage: 18 MCG / HOUR
     Route: 065
     Dates: start: 20140820, end: 20140822
  66. FENTANYL. [Concomitant]
     Active Substance: FENTANYL
     Dosage: 20/AUG/2014
     Route: 065
     Dates: start: 20140818, end: 20140820
  67. CYCLIZINE [Concomitant]
     Active Substance: CYCLIZINE
     Dosage: TDS PRN
     Route: 065
     Dates: start: 2014
  68. GEMCITABINE [Concomitant]
     Active Substance: GEMCITABINE\GEMCITABINE HYDROCHLORIDE
     Dates: start: 20140220, end: 20140220
  69. DEXAMETHASONE. [Concomitant]
     Active Substance: DEXAMETHASONE
     Route: 048
     Dates: start: 20140313, end: 20140317
  70. PARACETAMOL [Concomitant]
     Active Substance: ACETAMINOPHEN
     Indication: ANALGESIC THERAPY
     Route: 048
     Dates: start: 201312
  71. PREGABALIN. [Concomitant]
     Active Substance: PREGABALIN
     Route: 065
     Dates: start: 20140827
  72. ONDANSETRON [Concomitant]
     Active Substance: ONDANSETRON
     Route: 048
     Dates: start: 20140220, end: 20140224
  73. ONDANSETRON [Concomitant]
     Active Substance: ONDANSETRON
     Route: 065
     Dates: start: 20141013, end: 20141019
  74. CETIRIZINE [Concomitant]
     Active Substance: CETIRIZINE HYDROCHLORIDE
     Route: 048
     Dates: start: 20140312, end: 20140315
  75. CYCLIZINE [Concomitant]
     Active Substance: CYCLIZINE
     Route: 065
     Dates: start: 20141013
  76. DIAZEPAM. [Concomitant]
     Active Substance: DIAZEPAM
     Indication: ANXIETY
     Dosage: 5-15MG
     Route: 065
     Dates: start: 201312, end: 201408
  77. CARBOPLATIN. [Concomitant]
     Active Substance: CARBOPLATIN
     Indication: CHEMOTHERAPY
     Dosage: 4.0 AUC
     Route: 042
     Dates: start: 20140117
  78. MEBEVERINE [Concomitant]
     Active Substance: MEBEVERINE
     Indication: IRRITABLE BOWEL SYNDROME
     Route: 048

REACTIONS (23)
  - Headache [Recovered/Resolved]
  - Tooth infection [Recovered/Resolved]
  - Lethargy [Not Recovered/Not Resolved]
  - Toothache [Recovered/Resolved]
  - Arthralgia [Not Recovered/Not Resolved]
  - Epistaxis [Recovered/Resolved]
  - Abdominal pain upper [Recovered/Resolved with Sequelae]
  - Lower respiratory tract infection [Recovered/Resolved]
  - Nausea [Recovered/Resolved with Sequelae]
  - Abdominal distension [Recovered/Resolved with Sequelae]
  - Pulmonary embolism [Recovered/Resolved]
  - Enthesopathy [Not Recovered/Not Resolved]
  - Diarrhoea [Recovered/Resolved]
  - Headache [Recovered/Resolved]
  - Abdominal pain upper [Recovered/Resolved with Sequelae]
  - Oral herpes [Recovered/Resolved]
  - Small intestinal obstruction [Recovered/Resolved with Sequelae]
  - Thrombophlebitis superficial [Recovered/Resolved]
  - Musculoskeletal pain [Recovered/Resolved]
  - Abdominal pain [Recovered/Resolved with Sequelae]
  - Constipation [Not Recovered/Not Resolved]
  - Dyspepsia [Recovered/Resolved]
  - Hypersensitivity [Recovered/Resolved]

NARRATIVE: CASE EVENT DATE: 201305
